FAERS Safety Report 21752673 (Version 1)
Quarter: 2022Q4

REPORT INFORMATION
  Report Type: Spontaneous
  Country: CZ (occurrence: CZ)
  Receive Date: 20221220
  Receipt Date: 20221220
  Transmission Date: 20230113
  Serious: Yes (Life-Threatening, Hospitalization, Other)
  Sender: FDA-Public Use
  Company Number: None

PATIENT
  Age: 81 Year
  Sex: Female

DRUGS (13)
  1. LINAGLIPTIN [Suspect]
     Active Substance: LINAGLIPTIN
     Indication: Diabetes mellitus
     Route: 048
     Dates: start: 202112, end: 20221026
  2. ALLOPURINOL [Concomitant]
     Active Substance: ALLOPURINOL
     Indication: Product used for unknown indication
     Route: 048
  3. ATORVASTATIN CALCIUM [Concomitant]
     Active Substance: ATORVASTATIN CALCIUM
     Indication: Product used for unknown indication
  4. FUROSEMIDE [Concomitant]
     Active Substance: FUROSEMIDE
     Indication: Product used for unknown indication
  5. LERCANIDIPINE HYDROCHLORIDE [Concomitant]
     Active Substance: LERCANIDIPINE HYDROCHLORIDE
     Indication: Product used for unknown indication
     Dosage: 1/2-0-0
  6. VENTOLIN [Concomitant]
     Active Substance: ALBUTEROL SULFATE
     Indication: Product used for unknown indication
     Dosage: FORM OF ADMIN.?PRESSURISED INHALATION, SOLUTION
     Route: 055
  7. ESOMEPRAZOLE MAGNESIUM [Concomitant]
     Active Substance: ESOMEPRAZOLE MAGNESIUM
     Indication: Product used for unknown indication
     Dosage: FORM OF ADMIN.?GASTRO-RESISTANT CAPSULE, HARD
  8. REPAGLINIDE [Concomitant]
     Active Substance: REPAGLINIDE
     Indication: Diabetes mellitus
  9. REPAGLINIDE [Concomitant]
     Active Substance: REPAGLINIDE
  10. MABRON RETARD 100 MG [Concomitant]
     Indication: Product used for unknown indication
     Route: 048
  11. ECOBEC 100 MCG [Concomitant]
     Indication: Product used for unknown indication
     Dosage: 2 DOSAGE FORM?FORM OF ADMIN.?PRESSURISED INHALATION, SOLUTION
     Route: 055
  12. TEZEO 40 MG [Concomitant]
     Indication: Product used for unknown indication
     Dosage: 1/2-0-0
  13. NEBILET 5 MG [Concomitant]
     Indication: Product used for unknown indication
     Route: 048

REACTIONS (3)
  - Pemphigoid [Recovering/Resolving]
  - Sepsis [Recovering/Resolving]
  - Hyperglycaemia [Recovering/Resolving]

NARRATIVE: CASE EVENT DATE: 20221019
